FAERS Safety Report 6467655-1 (Version None)
Quarter: 2009Q4

REPORT INFORMATION
  Report Type: 
  Country: None (occurrence: None)
  Receive Date: 20091127
  Receipt Date: 20091111
  Transmission Date: 20100525
  Serious: Yes (Hospitalization)
  Sender: FDA-Public Use
  Company Number: 2009003291

PATIENT
  Age: 80 Year
  Sex: Male

DRUGS (18)
  1. ERLOTINIB HYDROCHLORIDE [Suspect]
     Indication: NON-SMALL CELL LUNG CANCER
     Dosage: 150 MG,QD, ORAL
     Route: 048
     Dates: start: 20051206, end: 20090811
  2. OMEPRAZOLE [Concomitant]
  3. TRAMADOL HCL [Concomitant]
  4. MOVICOL (NULYTELY) [Concomitant]
  5. PIZOTIFEN (PIZOTIFEN) [Concomitant]
  6. HYPROMELLOSE (HYPROMELLOSE) [Concomitant]
  7. FLUTICASONE PROPIONATE [Concomitant]
  8. LORATIDINE + PSEUDOEPHEDRINE SULFATE [Concomitant]
  9. IRBESARTAN [Concomitant]
  10. SALBUTAMOL (SALBUTAMOL) [Concomitant]
  11. ZOPICLONE (ZOPICLONE) [Concomitant]
  12. LANSOPRAZOLE [Concomitant]
  13. AMLODIPINE [Concomitant]
  14. CYCLIZINE (CYCLIZINE) [Concomitant]
  15. ACETAMINOPHEN [Concomitant]
  16. OXYBUTYNIN CHLORIDE [Concomitant]
  17. CETIRIZINE HCL [Concomitant]
  18. AMITRIPTYLINE HYDROCHLORIDE [Concomitant]

REACTIONS (21)
  - ABDOMINAL DISCOMFORT [None]
  - ABDOMINAL PAIN [None]
  - ASTHENIA [None]
  - DECREASED APPETITE [None]
  - DELUSION [None]
  - FAECAL INCONTINENCE [None]
  - FATIGUE [None]
  - GENERAL PHYSICAL HEALTH DETERIORATION [None]
  - HAEMOGLOBIN DECREASED [None]
  - HEADACHE [None]
  - HYDRONEPHROSIS [None]
  - MOBILITY DECREASED [None]
  - NAUSEA [None]
  - PLATELET COUNT INCREASED [None]
  - RENAL FAILURE [None]
  - RETROPERITONEAL FIBROSIS [None]
  - SENSORY LOSS [None]
  - URETERIC OBSTRUCTION [None]
  - URINARY INCONTINENCE [None]
  - VOMITING [None]
  - WEIGHT DECREASED [None]
